FAERS Safety Report 10163513 (Version 1)
Quarter: 2014Q2

REPORT INFORMATION
  Report Type: Spontaneous
  Country: GB (occurrence: GB)
  Receive Date: 20140509
  Receipt Date: 20140509
  Transmission Date: 20141212
  Serious: Yes (Other)
  Sender: FDA-Public Use
  Company Number: GB-ENDO PHARMACEUTICALS INC.-FRVA20140018

PATIENT
  Age: 50 Year
  Sex: Female
  Weight: 58 kg

DRUGS (6)
  1. FROVA TABLETS [Suspect]
     Indication: MIGRAINE
     Dosage: UNKNOWN
     Route: 065
     Dates: start: 20140407, end: 20140407
  2. MAXALT [Suspect]
     Indication: MIGRAINE
     Dosage: UNKNOWN
     Route: 048
     Dates: start: 20140406
  3. MAXALT [Suspect]
     Route: 048
     Dates: start: 20140406
  4. PARACETAMOL [Concomitant]
     Indication: MIGRAINE
     Dosage: UNK
     Route: 065
  5. TRAMADOL [Concomitant]
     Indication: MIGRAINE
     Dosage: UNK
     Route: 065
  6. IBUPROFEN TABLETS [Concomitant]
     Indication: MIGRAINE
     Dosage: UNK
     Route: 065

REACTIONS (1)
  - Pain [Recovered/Resolved]
